FAERS Safety Report 4987418-3 (Version None)
Quarter: 2006Q2

REPORT INFORMATION
  Report Type: 
  Country: None (occurrence: None)
  Receive Date: 20060501
  Receipt Date: 20051031
  Transmission Date: 20061013
  Serious: Yes (Hospitalization)
  Sender: FDA-Public Use
  Company Number: US-MERCK-0511USA00307

PATIENT
  Age: 79 Year
  Sex: Female
  Weight: 52 kg

DRUGS (18)
  1. VIOXX [Suspect]
     Indication: OSTEOARTHRITIS
     Route: 048
     Dates: start: 20040109, end: 20040930
  2. VIOXX [Suspect]
     Indication: PAIN
     Route: 048
     Dates: start: 20040109, end: 20040930
  3. DIOVAN [Concomitant]
     Indication: HYPERTENSION
     Route: 065
     Dates: start: 20040101, end: 20040101
  4. COREG [Concomitant]
     Indication: HYPERTENSION
     Route: 065
     Dates: start: 20040801
  5. NIFEDIPINE [Concomitant]
     Indication: CARDIAC DISORDER
     Route: 065
     Dates: start: 20040801, end: 20040901
  6. VERAPAMIL HYDROCHLORIDE [Concomitant]
     Indication: CARDIAC DISORDER
     Route: 065
     Dates: start: 20000101, end: 20040801
  7. COZAAR [Concomitant]
     Indication: HYPERTENSION
     Route: 065
     Dates: start: 20040101, end: 20040101
  8. CATAPRES [Concomitant]
     Indication: HYPERTENSION
     Route: 065
     Dates: start: 20040701
  9. ISOSORBIDE [Concomitant]
     Indication: HYPERTENSION
     Route: 065
     Dates: start: 20040801, end: 20040901
  10. COUMADIN [Concomitant]
     Route: 065
     Dates: start: 20040101, end: 20040101
  11. ASPIRIN [Concomitant]
     Indication: PROPHYLAXIS
     Route: 065
     Dates: start: 20000101
  12. PLAVIX [Concomitant]
     Route: 065
     Dates: start: 20000901
  13. PROTONIX [Concomitant]
     Route: 065
  14. PRANDIN [Concomitant]
     Route: 065
  15. METFORMIN [Concomitant]
     Route: 065
  16. OXYBUTYNIN CHLORIDE [Concomitant]
     Route: 065
  17. HUMIBID [Concomitant]
     Route: 065
  18. GLYBURIDE [Concomitant]
     Route: 065

REACTIONS (5)
  - CARDIAC FAILURE CONGESTIVE [None]
  - CAROTID ARTERY DISEASE [None]
  - CEREBRAL INFARCTION [None]
  - SWELLING [None]
  - TRANSIENT ISCHAEMIC ATTACK [None]
